FAERS Safety Report 10434312 (Version 1)
Quarter: 2014Q3

REPORT INFORMATION
  Report Type: Spontaneous
  Country: CH (occurrence: CH)
  Receive Date: 20140905
  Receipt Date: 20140905
  Transmission Date: 20150326
  Serious: Yes (Hospitalization, Other)
  Sender: FDA-Public Use
  Company Number: CH-TEVA-505217ISR

PATIENT
  Age: 77 Year
  Sex: Female
  Weight: 70.1 kg

DRUGS (13)
  1. CO-ENATEC [Suspect]
     Active Substance: ENALAPRIL MALEATE\HYDROCHLOROTHIAZIDE
     Indication: ESSENTIAL HYPERTENSION
     Route: 048
     Dates: start: 20140101, end: 20140722
  2. PANTOPRAZOLE [Concomitant]
     Active Substance: PANTOPRAZOLE SODIUM
     Indication: DUODENAL ULCER
     Dosage: 40 MILLIGRAM DAILY;
     Route: 048
     Dates: end: 20140722
  3. LITHIOFOR [Interacting]
     Active Substance: LITHIUM SULFATE
     Indication: BIPOLAR DISORDER
     Dosage: 660 MILLIGRAM DAILY;
     Route: 048
     Dates: start: 1998, end: 20140722
  4. IRFEN [Concomitant]
     Active Substance: IBUPROFEN
     Indication: BACK PAIN
     Dosage: 600 MILLIGRAM DAILY;
     Route: 048
     Dates: end: 20140722
  5. XANAX [Concomitant]
     Active Substance: ALPRAZOLAM
     Indication: BIPOLAR DISORDER
     Route: 048
     Dates: start: 20140715, end: 20140722
  6. VENLAFAXINE [Concomitant]
     Active Substance: VENLAFAXINE HYDROCHLORIDE
     Indication: BIPOLAR DISORDER
     Dosage: 75 MILLIGRAM DAILY;
     Route: 048
     Dates: end: 20140722
  7. NOVALGIN [Concomitant]
     Active Substance: METAMIZOLE SODIUM
     Indication: BACK PAIN
     Dosage: 500 MILLIGRAM DAILY;
     Route: 048
     Dates: end: 20140722
  8. DAFALGAN [Concomitant]
     Active Substance: ACETAMINOPHEN
     Indication: BACK PAIN
     Dosage: 3 GRAM DAILY;
     Route: 048
  9. METO ZEROK [Concomitant]
     Active Substance: METOPROLOL SUCCINATE
     Indication: ESSENTIAL HYPERTENSION
     Dosage: 100 MILLIGRAM DAILY;
     Route: 048
  10. ADALAT [Concomitant]
     Active Substance: NIFEDIPINE
     Indication: ESSENTIAL HYPERTENSION
     Dosage: 30 MILLIGRAM DAILY; START DATE UNKNOWN
     Route: 048
     Dates: end: 20140723
  11. ASPIRIN. [Concomitant]
     Active Substance: ASPIRIN
     Indication: EMBOLIC STROKE
     Dosage: 100 MILLIGRAM DAILY; ONGOING
     Route: 048
     Dates: start: 20020622
  12. TEMESTA [Concomitant]
     Active Substance: LORAZEPAM
     Indication: BIPOLAR DISORDER
     Dosage: 1.5 MILLIGRAM DAILY;
     Route: 048
     Dates: start: 2008, end: 20140731
  13. SEROQUEL [Concomitant]
     Active Substance: QUETIAPINE FUMARATE
     Indication: BIPOLAR DISORDER
     Dosage: 25 MILLIGRAM DAILY;
     Route: 048

REACTIONS (11)
  - Musculoskeletal stiffness [Recovered/Resolved]
  - Drug interaction [Recovered/Resolved]
  - Toxicity to various agents [Recovered/Resolved]
  - Tremor [Recovered/Resolved]
  - Blood sodium increased [Recovered/Resolved]
  - Disturbance in attention [Unknown]
  - Antipsychotic drug level increased [Recovered/Resolved]
  - Dysarthria [Recovered/Resolved]
  - Confusional state [Recovered/Resolved]
  - Glomerular filtration rate decreased [Recovered/Resolved]
  - Blood creatinine increased [Recovering/Resolving]

NARRATIVE: CASE EVENT DATE: 2014
